FAERS Safety Report 24961408 (Version 1)
Quarter: 2025Q1

REPORT INFORMATION
  Report Type: Spontaneous
  Country: DE (occurrence: DE)
  Receive Date: 20250212
  Receipt Date: 20250212
  Transmission Date: 20250409
  Serious: Yes (Death, Hospitalization, Other)
  Sender: ALEXION PHARMACEUTICALS
  Company Number: DE-002147023-NVSC2025DE019395

PATIENT
  Weight: 56 kg

DRUGS (8)
  1. FULVESTRANT [Suspect]
     Active Substance: FULVESTRANT
     Indication: Breast cancer metastatic
     Dosage: 500 MG, QD (DAILY DOSE)
  2. FULVESTRANT [Suspect]
     Active Substance: FULVESTRANT
  3. LETROZOLE [Suspect]
     Active Substance: LETROZOLE
     Indication: Breast cancer metastatic
     Dosage: 2.5 MG, QD (DAILY DOSE)
  4. RIBOCICLIB [Suspect]
     Active Substance: RIBOCICLIB
     Indication: Breast cancer metastatic
     Dosage: 600 MG, QD DAILY DOSE (REGIMEN 21 DAYS INTAKE, 7 DAYS PAUSE)
  5. RIBOCICLIB [Suspect]
     Active Substance: RIBOCICLIB
     Dosage: 400 MG, QD DAILY DOSE (REGIMEN 21 DAYS INTAKE, 7 DAYS PAUSE)
  6. RIBOCICLIB [Suspect]
     Active Substance: RIBOCICLIB
     Dosage: 400 MG, QD DAILY DOSE (REGIMEN 21 DAYS INTAKE, 7 DAYS PAUSE)
  7. ABEMACICLIB [Concomitant]
     Active Substance: ABEMACICLIB
     Indication: Breast cancer metastatic
     Dosage: 300 MG, QD (DAILY DOSE)
  8. ABEMACICLIB [Concomitant]
     Active Substance: ABEMACICLIB
     Dosage: 300 MG, QD (DAILY DOSE)

REACTIONS (2)
  - Meningioma [Fatal]
  - Invasive ductal breast carcinoma [Fatal]
